FAERS Safety Report 5047224-0 (Version None)
Quarter: 2006Q3

REPORT INFORMATION
  Report Type: 
  Country: None (occurrence: None)
  Receive Date: 20060703
  Receipt Date: 20060627
  Transmission Date: 20061208
  Serious: Yes (Other)
  Sender: FDA-Public Use
  Company Number: 2006-06-1206

PATIENT
  Age: 76 Year
  Sex: Female
  Weight: 74 kg

DRUGS (1)
  1. PEG-INTRON [Suspect]
     Indication: MULTIPLE MYELOMA
     Dates: start: 20050317

REACTIONS (1)
  - CATARACT [None]
